FAERS Safety Report 4732639-8 (Version None)
Quarter: 2005Q3

REPORT INFORMATION
  Report Type: 
  Country: None (occurrence: None)
  Receive Date: 20050801
  Receipt Date: 20050518
  Transmission Date: 20060218
  Serious: Yes (Other)
  Sender: FDA-Public Use
  Company Number: 2005081102

PATIENT
  Age: 71 Year
  Sex: Female

DRUGS (4)
  1. DETROL LA [Suspect]
     Indication: STRESS INCONTINENCE
     Dosage: 4 MG (4 MG, 1 IN 1 D), ORAL
     Route: 048
  2. GLIPIZIDE [Suspect]
     Indication: DIABETES MELLITUS
     Dosage: ORAL
     Route: 048
     Dates: end: 20050101
  3. LIPITOR [Concomitant]
  4. ACTOS [Concomitant]

REACTIONS (12)
  - BLOOD GLUCOSE INCREASED [None]
  - CYST [None]
  - DRUG EFFECT DECREASED [None]
  - GLYCOSYLATED HAEMOGLOBIN INCREASED [None]
  - HYPERKERATOSIS [None]
  - LIMB INJURY [None]
  - MALAISE [None]
  - REFUSAL OF TREATMENT BY PATIENT [None]
  - STRESS [None]
  - TOE DEFORMITY [None]
  - TREATMENT NONCOMPLIANCE [None]
  - WEIGHT DECREASED [None]
